FAERS Safety Report 9773730 (Version 2)
Quarter: 2014Q1

REPORT INFORMATION
  Report Type: Spontaneous
  Country: US (occurrence: US)
  Receive Date: 20131219
  Receipt Date: 20140120
  Transmission Date: 20141002
  Serious: No
  Sender: FDA-Public Use
  Company Number: US-GILEAD-2013-0090124

PATIENT
  Age: 60 Year
  Sex: Female

DRUGS (3)
  1. LETAIRIS [Suspect]
     Indication: PULMONARY HYPERTENSION
     Route: 048
     Dates: start: 20130419, end: 20131206
  2. LETAIRIS [Suspect]
     Indication: COLLAGEN-VASCULAR DISEASE
  3. LETAIRIS [Suspect]
     Indication: CONNECTIVE TISSUE DISORDER

REACTIONS (2)
  - Swelling [Not Recovered/Not Resolved]
  - Oedema peripheral [Not Recovered/Not Resolved]
